FAERS Safety Report 9377381 (Version 2)
Quarter: 2013Q3

REPORT INFORMATION
  Report Type: Spontaneous
  Country: JP (occurrence: JP)
  Receive Date: 20130701
  Receipt Date: 20130702
  Transmission Date: 20140515
  Serious: Yes (Other)
  Sender: FDA-Public Use
  Company Number: JP-PFIZER INC-2013190622

PATIENT
  Age: 2 Year
  Sex: Male

DRUGS (1)
  1. HYDROCORTISONE [Suspect]
     Indication: RESPIRATORY FAILURE
     Dosage: AT A TOTAL DOSE OF 625 MG CONVERTED TO PREDNISONE EQUIVALENT
     Dates: start: 20000405, end: 20000414

REACTIONS (2)
  - Panniculitis [Unknown]
  - Hyperparathyroidism [Unknown]
